FAERS Safety Report 7777159-1 (Version None)
Quarter: 2011Q3

REPORT INFORMATION
  Report Type: 
  Country: None (occurrence: None)
  Receive Date: 20110926
  Receipt Date: 20110913
  Transmission Date: 20111222
  Serious: Yes (Other)
  Sender: FDA-Public Use
  Company Number: US-BAYER-2011-086293

PATIENT
  Sex: Male
  Weight: 84 kg

DRUGS (4)
  1. LISINOPRIL [Concomitant]
  2. PRAVASTATIN [Concomitant]
  3. ASPIRIN [Suspect]
     Dosage: UNK UNK, QD
     Dates: start: 19990101
  4. LOPRESSOR [Concomitant]

REACTIONS (5)
  - COUGH [None]
  - MYOCARDIAL INFARCTION [None]
  - HEART RATE INCREASED [None]
  - THROMBOSIS [None]
  - DYSPNOEA [None]
